FAERS Safety Report 19786731 (Version 1)
Quarter: 2021Q3

REPORT INFORMATION
  Report Type: Spontaneous
  Country: US (occurrence: US)
  Receive Date: 20210903
  Receipt Date: 20210903
  Transmission Date: 20211014
  Serious: Yes (Other)
  Sender: FDA-Public Use
  Company Number: US-TEVA-2021-US-1946677

PATIENT

DRUGS (1)
  1. MUPIROCIN. [Suspect]
     Active Substance: MUPIROCIN
     Route: 065

REACTIONS (7)
  - Application site pain [Unknown]
  - Skin discomfort [Unknown]
  - Wound infection [Unknown]
  - Cyst [Unknown]
  - Pain [Unknown]
  - Product use complaint [Unknown]
  - Pseudomonas infection [Unknown]
